FAERS Safety Report 6671323-0 (Version None)
Quarter: 2010Q2

REPORT INFORMATION
  Report Type: 
  Country: None (occurrence: None)
  Receive Date: 20100407
  Receipt Date: 20100331
  Transmission Date: 20101027
  Serious: Yes (Hospitalization)
  Sender: FDA-Public Use
  Company Number: FR-EISAI INC.-E7273-00143-SPO-FR

PATIENT
  Age: 72 Year
  Sex: Male

DRUGS (11)
  1. TARGRETIN [Suspect]
     Route: 048
     Dates: start: 20091022, end: 20100222
  2. TARGRETIN [Suspect]
     Route: 048
     Dates: start: 20100222
  3. TARGRETIN [Suspect]
     Route: 048
     Dates: start: 20080901, end: 20091022
  4. TARGRETIN [Suspect]
     Route: 048
     Dates: start: 20080401, end: 20080901
  5. METHOTREXATE BELLON [Suspect]
     Route: 048
     Dates: start: 20091022, end: 20100222
  6. CARMUSTINE [Concomitant]
     Dates: start: 20080901
  7. LEVOTHYROX [Concomitant]
     Indication: HYPOTHYROIDISM
     Route: 048
  8. LIPANTHYL [Concomitant]
     Route: 048
  9. NOVATREX [Concomitant]
     Route: 048
     Dates: start: 20080901, end: 20100222
  10. DEXERYL [Concomitant]
  11. PARACETAMOL [Concomitant]

REACTIONS (3)
  - GENERAL PHYSICAL HEALTH DETERIORATION [None]
  - INFLAMMATION [None]
  - PYREXIA [None]
